FAERS Safety Report 9136266 (Version 1)
Quarter: 2013Q1

REPORT INFORMATION
  Report Type: Spontaneous
  Country: US (occurrence: US)
  Receive Date: 20130304
  Receipt Date: 20130304
  Transmission Date: 20140127
  Serious: No
  Sender: FDA-Public Use
  Company Number: US-ABBOTT-12P-163-1004797-00

PATIENT
  Sex: Male
  Weight: 129.39 kg

DRUGS (7)
  1. ANDROGEL [Suspect]
     Indication: BLOOD TESTOSTERONE DECREASED
     Dosage: 2 PUMPS DAILY
     Dates: start: 20120906
  2. UNKNOWN MEDICATION [Concomitant]
     Indication: ASTHMA
  3. UNKNOWN MEDICATION [Concomitant]
     Indication: DEPRESSION
  4. UNKNOWN MEDICATION [Concomitant]
     Indication: ANXIETY
  5. UNKNOWN MEDICATION [Concomitant]
     Indication: PAIN
  6. C-PAP MACHINE [Concomitant]
     Indication: SLEEP APNOEA SYNDROME
  7. POTASSIUM [Concomitant]
     Indication: SUPPLEMENTATION THERAPY

REACTIONS (4)
  - Irritability [Unknown]
  - Poor quality sleep [Unknown]
  - Libido increased [Unknown]
  - Energy increased [Unknown]
